FAERS Safety Report 13798089 (Version 1)
Quarter: 2017Q3

REPORT INFORMATION
  Report Type: Spontaneous
  Country: US (occurrence: US)
  Receive Date: 20170726
  Receipt Date: 20170726
  Transmission Date: 20171127
  Serious: Yes (Other)
  Sender: FDA-Public Use
  Company Number: None

PATIENT
  Age: 72 Year
  Sex: Female
  Weight: 89.1 kg

DRUGS (6)
  1. DIOVAN [Concomitant]
     Active Substance: VALSARTAN
  2. METOPROLOL. [Concomitant]
     Active Substance: METOPROLOL
  3. ARMOUR THYROID [Concomitant]
     Active Substance: THYROID, PORCINE
  4. CHLORTHALIDONE. [Concomitant]
     Active Substance: CHLORTHALIDONE
  5. CARBOPLATIN. [Concomitant]
     Active Substance: CARBOPLATIN
  6. CAPECITABINE. [Suspect]
     Active Substance: CAPECITABINE
     Indication: BREAST CANCER
     Route: 048
     Dates: start: 20161130, end: 20170726

REACTIONS (1)
  - Disease progression [None]
